FAERS Safety Report 16846683 (Version 2)
Quarter: 2019Q4

REPORT INFORMATION
  Report Type: Spontaneous
  Country: PT (occurrence: PT)
  Receive Date: 20190924
  Receipt Date: 20191009
  Transmission Date: 20200122
  Serious: Yes (Other)
  Sender: FDA-Public Use
  Company Number: PT-PURDUE PHARMA-GBR-2019-0070790

PATIENT
  Age: 60 Year
  Sex: Female

DRUGS (2)
  1. NON-PMN THEOPHYLLINE [Suspect]
     Active Substance: THEOPHYLLINE ANHYDROUS
     Dosage: UNK (4-6 TABLETS DAILY)
     Route: 065
  2. NON-PMN THEOPHYLLINE [Suspect]
     Active Substance: THEOPHYLLINE ANHYDROUS
     Indication: ASTHMA
     Dosage: 225 MG, UNK
     Route: 065

REACTIONS (7)
  - Renal impairment [Unknown]
  - Hallucination, auditory [Unknown]
  - Hallucination, visual [Unknown]
  - Mixed dementia [Unknown]
  - Confusional state [Unknown]
  - Poisoning [Unknown]
  - Seizure [Unknown]
